FAERS Safety Report 7686596-5 (Version None)
Quarter: 2011Q3

REPORT INFORMATION
  Report Type: 
  Country: None (occurrence: None)
  Receive Date: 20110816
  Receipt Date: 20110802
  Transmission Date: 20111222
  Serious: Yes (Life-Threatening, Other)
  Sender: FDA-Public Use
  Company Number: ZA-MERCK-1108ZAF00011

PATIENT
  Age: 50 Year
  Sex: Male

DRUGS (2)
  1. INVANZ [Suspect]
     Indication: INFECTION
     Route: 051
  2. VALPROATE SODIUM [Suspect]
     Indication: PROPHYLAXIS
     Route: 048

REACTIONS (3)
  - CONVULSION [None]
  - ADVERSE EVENT [None]
  - DRUG INTERACTION [None]
